FAERS Safety Report 5257052-9 (Version None)
Quarter: 2007Q1

REPORT INFORMATION
  Report Type: 
  Country: None (occurrence: None)
  Receive Date: 20070305
  Receipt Date: 20070305
  Transmission Date: 20070707
  Serious: Yes (Hospitalization, Other)
  Sender: FDA-Public Use
  Company Number: None

PATIENT
  Age: 60 Year
  Sex: Female
  Weight: 77.1115 kg

DRUGS (1)
  1. JANUVIA [Suspect]
     Indication: DIABETES MELLITUS
     Dosage: 100MG  ONCE/DAY  PO
     Route: 048

REACTIONS (5)
  - ABDOMINAL PAIN [None]
  - HYPOGLYCAEMIA [None]
  - LIPASE INCREASED [None]
  - NAUSEA [None]
  - VOMITING [None]
